FAERS Safety Report 8135386-8 (Version None)
Quarter: 2012Q1

REPORT INFORMATION
  Report Type: 
  Country: None (occurrence: None)
  Receive Date: 20120214
  Receipt Date: 20120130
  Transmission Date: 20120608
  Serious: Yes (Hospitalization)
  Sender: FDA-Public Use
  Company Number: FR-ROCHE-1035430

PATIENT
  Sex: Female

DRUGS (5)
  1. MABTHERA [Suspect]
     Indication: LYMPHOMA
     Route: 042
     Dates: start: 20111124, end: 20111124
  2. POLYIONIC SOLUTION (UNK INGREDIENTS) [Concomitant]
     Route: 042
     Dates: start: 20111124, end: 20111124
  3. PREDNISONE TAB [Concomitant]
     Route: 048
     Dates: start: 20111124, end: 20111124
  4. PARACETAMOL [Concomitant]
     Route: 048
     Dates: start: 20111124, end: 20111124
  5. POLARAMINE [Concomitant]
     Route: 042
     Dates: start: 20111124, end: 20111124

REACTIONS (3)
  - SKIN PLAQUE [None]
  - THROAT IRRITATION [None]
  - RASH ERYTHEMATOUS [None]
